FAERS Safety Report 7198504-4 (Version None)
Quarter: 2010Q4

REPORT INFORMATION
  Report Type: 
  Country: None (occurrence: None)
  Receive Date: 20101227
  Receipt Date: 20101221
  Transmission Date: 20110411
  Serious: Yes (Hospitalization)
  Sender: FDA-Public Use
  Company Number: FR-B.I. PHARMACEUTICALS,INC./RIDGEFIELD-2010-FF-01045FF

PATIENT
  Sex: Male

DRUGS (4)
  1. PRADAXA [Suspect]
     Indication: PROPHYLAXIS
     Route: 048
     Dates: start: 20101025
  2. CONTRAMAL [Suspect]
     Indication: ANALGESIC INTERVENTION SUPPORTIVE THERAPY
     Dosage: 200 MG
     Route: 048
     Dates: start: 20101025, end: 20101107
  3. TARDYFERON [Suspect]
     Indication: PROPHYLAXIS
     Route: 048
     Dates: start: 20101025
  4. PERFALGAN [Suspect]
     Indication: ANALGESIC INTERVENTION SUPPORTIVE THERAPY
     Dosage: 4 G
     Route: 042
     Dates: start: 20101025

REACTIONS (1)
  - PANCREATITIS ACUTE [None]
